FAERS Safety Report 7753754-0 (Version None)
Quarter: 2011Q3

REPORT INFORMATION
  Report Type: 
  Country: None (occurrence: None)
  Receive Date: 20110915
  Receipt Date: 20110913
  Transmission Date: 20111222
  Serious: Yes (Hospitalization)
  Sender: FDA-Public Use
  Company Number: FR-TEVA-300637ISR

PATIENT
  Sex: Female
  Weight: 46.6 kg

DRUGS (4)
  1. ASPIRIN [Concomitant]
     Indication: THROMBOSIS PROPHYLAXIS
     Route: 048
     Dates: start: 20100812
  2. DEXAMETHASONE [Suspect]
     Indication: MULTIPLE MYELOMA
     Dates: start: 20100326
  3. ASCOFER [Concomitant]
     Indication: IRON DEFICIENCY
     Dates: start: 20100210
  4. LENALIDOMIDE [Suspect]
     Indication: MULTIPLE MYELOMA
     Route: 048
     Dates: start: 20100326

REACTIONS (1)
  - ABDOMINAL PAIN UPPER [None]
